FAERS Safety Report 6232943-0 (Version None)
Quarter: 2009Q2

REPORT INFORMATION
  Report Type: 
  Country: None (occurrence: None)
  Receive Date: 20090615
  Receipt Date: 20090615
  Transmission Date: 20091009
  Serious: Yes (Other)
  Sender: FDA-Public Use
  Company Number: None

PATIENT
  Sex: Female
  Weight: 104.3273 kg

DRUGS (1)
  1. SKELAXIN [Suspect]
     Indication: MUSCLE RELAXANT THERAPY
     Dosage: 3 TIMES PER DAY
     Dates: start: 20090315, end: 20090401

REACTIONS (1)
  - BLINDNESS TRANSIENT [None]
